FAERS Safety Report 15609817 (Version 2)
Quarter: 2018Q4

REPORT INFORMATION
  Report Type: Spontaneous
  Country: JP (occurrence: JP)
  Receive Date: 20181113
  Receipt Date: 20181121
  Transmission Date: 20190205
  Serious: Yes (Hospitalization)
  Sender: FDA-Public Use
  Company Number: JP-TAKEDA-2018TJP027861

PATIENT
  Age: 9 Decade
  Sex: Male

DRUGS (1)
  1. ROZEREM [Suspect]
     Active Substance: RAMELTEON
     Indication: INITIAL INSOMNIA
     Dosage: 8 MG, UNK
     Route: 050

REACTIONS (3)
  - Product prescribing error [Unknown]
  - Hospitalisation [Unknown]
  - Wrong technique in product usage process [Unknown]
